FAERS Safety Report 15487167 (Version 2)
Quarter: 2018Q4

REPORT INFORMATION
  Report Type: Spontaneous
  Country: PT (occurrence: PT)
  Receive Date: 20181011
  Receipt Date: 20181103
  Transmission Date: 20190205
  Serious: Yes (Life-Threatening, Hospitalization, Other)
  Sender: FDA-Public Use
  Company Number: PT-AUROBINDO-AUR-APL-2018-049269

PATIENT
  Age: 67 Year
  Sex: Male
  Weight: 78 kg

DRUGS (7)
  1. SPIRONOLACTONE. [Concomitant]
     Active Substance: SPIRONOLACTONE
     Indication: PRODUCT USED FOR UNKNOWN INDICATION
     Dosage: UNK
     Route: 065
     Dates: start: 2016
  2. ZYLORIC [Concomitant]
     Active Substance: ALLOPURINOL
     Indication: PRODUCT USED FOR UNKNOWN INDICATION
     Dosage: UNK
     Route: 065
  3. AMIODARONE TABLETS [Suspect]
     Active Substance: AMIODARONE
     Indication: HEART RATE ABNORMAL
     Dosage: 200 MILLIGRAM, ONCE A DAY
     Route: 048
     Dates: start: 20130228, end: 20180917
  4. PRAVASTATIN. [Concomitant]
     Active Substance: PRAVASTATIN
     Indication: PRODUCT USED FOR UNKNOWN INDICATION
     Dosage: UNK
     Route: 065
  5. VARFINE [Concomitant]
     Active Substance: WARFARIN SODIUM
     Indication: PRODUCT USED FOR UNKNOWN INDICATION
     Dosage: UNK
     Route: 065
  6. BISOPROLOL FILM-COATED TABLETS [Suspect]
     Active Substance: BISOPROLOL
     Indication: HEART RATE ABNORMAL
     Dosage: 5 MILLIGRAM, ONCE A DAY
     Route: 048
     Dates: start: 20130401, end: 20180917
  7. ESOMEPRAZOLE. [Concomitant]
     Active Substance: ESOMEPRAZOLE MAGNESIUM
     Indication: PRODUCT USED FOR UNKNOWN INDICATION
     Dosage: UNK
     Route: 065

REACTIONS (2)
  - Atrioventricular block complete [Recovered/Resolved with Sequelae]
  - Syncope [Recovered/Resolved]

NARRATIVE: CASE EVENT DATE: 20180917
